FAERS Safety Report 4732824-5 (Version None)
Quarter: 2005Q3

REPORT INFORMATION
  Report Type: 
  Country: None (occurrence: None)
  Receive Date: 20050803
  Receipt Date: 20040423
  Transmission Date: 20060218
  Serious: Yes (Death)
  Sender: FDA-Public Use
  Company Number: US-GILEAD-2004-0006911

PATIENT
  Sex: Female
  Weight: 33.142 kg

DRUGS (9)
  1. VIREAD [Suspect]
     Indication: HIV INFECTION
     Route: 048
     Dates: start: 20031030, end: 20040327
  2. KALETRA [Concomitant]
     Indication: HIV INFECTION
     Route: 048
     Dates: start: 20031030, end: 20040327
  3. VIDEX EC [Concomitant]
     Indication: HIV INFECTION
     Route: 048
     Dates: start: 20031030, end: 20040327
  4. OXANDRIN [Concomitant]
     Indication: CACHEXIA
     Route: 048
     Dates: start: 20040204
  5. PROTONIX [Concomitant]
     Indication: GASTRITIS
     Route: 048
  6. MEPRON LIQUID [Concomitant]
     Indication: INFECTION PROPHYLAXIS
     Route: 048
  7. ZITHROMAX [Concomitant]
     Indication: ANTIBIOTIC PROPHYLAXIS
     Route: 048
  8. PROCRIT [Concomitant]
     Indication: ANAEMIA
     Dosage: 40000 IU PER WEEK
     Route: 058
  9. MARINOL [Concomitant]
     Indication: CACHEXIA
     Route: 048

REACTIONS (6)
  - ABDOMINAL PAIN [None]
  - ANOREXIA [None]
  - DEHYDRATION [None]
  - DIALYSIS [None]
  - DISEASE PROGRESSION [None]
  - RENAL FAILURE ACUTE [None]
